FAERS Safety Report 21943408 (Version 1)
Quarter: 2023Q1

REPORT INFORMATION
  Report Type: Spontaneous
  Country: US (occurrence: US)
  Receive Date: 20230202
  Receipt Date: 20230202
  Transmission Date: 20230418
  Serious: No
  Sender: FDA-Public Use
  Company Number: US-PADAGIS-2023PAD00071

PATIENT

DRUGS (1)
  1. LIDOCAINE\PRILOCAINE [Suspect]
     Active Substance: LIDOCAINE\PRILOCAINE
     Indication: Flank pain
     Dosage: 1 DOSAGE FORM  BID
     Route: 061
     Dates: start: 20230119, end: 20230119

REACTIONS (2)
  - Drug ineffective for unapproved indication [Unknown]
  - Product quality issue [Unknown]

NARRATIVE: CASE EVENT DATE: 20230119
